FAERS Safety Report 14917055 (Version 1)
Quarter: 2018Q2

REPORT INFORMATION
  Report Type: Spontaneous
  Country: AU (occurrence: AU)
  Receive Date: 20180520
  Receipt Date: 20180520
  Transmission Date: 20180711
  Serious: Yes (Death)
  Sender: FDA-Public Use
  Company Number: AU-BAXTER-2018BAX014579

PATIENT
  Sex: Female

DRUGS (11)
  1. CERNEVIT [Suspect]
     Active Substance: VITAMINS
     Indication: PARENTERAL NUTRITION
     Dosage: WITH VITAMIN K
     Route: 065
  2. ADULT TRACE ELEMENTS [Suspect]
     Active Substance: MINERALS
     Indication: PARENTERAL NUTRITION
     Dosage: WITH VITAMIN K, BAXTER UNLICENSED SPECIAL
     Route: 065
  3. CERNEVIT [Suspect]
     Active Substance: VITAMINS
     Dosage: WITHOUT VITAMIN K
     Route: 065
  4. ADULT TRACE ELEMENTS [Suspect]
     Active Substance: MINERALS
     Dosage: WITHOUT VITAMIN K, BAXTER UNLICENSED SPECIAL
     Route: 065
  5. SODIUM ASCORBATE [Suspect]
     Active Substance: SODIUM ASCORBATE
     Indication: PARENTERAL NUTRITION
     Dosage: WITH VITAMIN K, BAXTER UNLICENSED SPECIAL
     Route: 065
  6. STERILE WATER [Suspect]
     Active Substance: WATER
     Indication: PARENTERAL NUTRITION
     Dosage: WITH VITAMIN K
     Route: 065
  7. OLIMEL E [Suspect]
     Active Substance: AMINO ACIDS\DEXTROSE\ELECTROLYTES NOS\SOYBEAN OIL
     Dosage: WITHOUT VITAMIN K
     Route: 065
  8. KONAKION [Suspect]
     Active Substance: PHYTONADIONE
     Indication: PARENTERAL NUTRITION
     Dosage: VITAMIN K 10MG/ML, WITH VITAMIN K, BAXTER UNLICENSED SPECIAL
     Route: 065
  9. STERILE WATER [Suspect]
     Active Substance: WATER
     Dosage: WITHOUT VITAMIN K
     Route: 065
  10. SODIUM ASCORBATE [Suspect]
     Active Substance: SODIUM ASCORBATE
     Dosage: WITHOUT VITAMIN K, BAXTER UNLICENSED SPECIAL
     Route: 065
  11. OLIMEL E [Suspect]
     Active Substance: AMINO ACIDS\DEXTROSE\ELECTROLYTES NOS\SOYBEAN OIL
     Indication: PARENTERAL NUTRITION
     Dosage: WITH VITAMIN K
     Route: 065

REACTIONS (1)
  - Death [Fatal]

NARRATIVE: CASE EVENT DATE: 20180508
